FAERS Safety Report 7745889-3 (Version None)
Quarter: 2011Q3

REPORT INFORMATION
  Report Type: 
  Country: None (occurrence: None)
  Receive Date: 20110830
  Receipt Date: 20110824
  Transmission Date: 20111222
  Serious: Yes (Hospitalization)
  Sender: FDA-Public Use
  Company Number: 2011SP034998

PATIENT
  Age: 26 Year
  Sex: Female

DRUGS (8)
  1. NOVOSEVEN [Suspect]
     Indication: HAEMORRHAGE
     Dosage: 7 MG; QD; IV
     Route: 042
     Dates: start: 20100520, end: 20100520
  2. CLOTTAGEN (FACTOR I (FIBRINOGEN)) [Suspect]
     Indication: HAEMORRHAGE
     Dosage: 5 DF; IV
     Route: 042
     Dates: start: 20100519, end: 20100519
  3. TRADYFERON [Concomitant]
  4. CERAZETTE (DESOGESTREL /00754001/) [Suspect]
     Indication: PRODUCT USED FOR UNKNOWN INDICATION
     Route: 042
     Dates: start: 20100522
  5. NALADOR (SULPROSTONE) [Suspect]
     Indication: HAEMORRHAGE
     Dosage: IV
     Route: 042
     Dates: start: 20100519, end: 20100519
  6. NOVOSEVEN [Suspect]
     Indication: HAEMORRHAGE
     Dosage: 7 MG;QD;IV
     Route: 042
     Dates: start: 20100520, end: 20100520
  7. RESTORVOL (ELOHES) [Suspect]
     Dosage: 2 L;QD;IV
     Route: 042
     Dates: start: 20100520, end: 20100520
  8. LOVENOX [Concomitant]

REACTIONS (3)
  - OLIGOMENORRHOEA [None]
  - NECROSIS ISCHAEMIC [None]
  - METRORRHAGIA [None]
